FAERS Safety Report 7322157-5 (Version None)
Quarter: 2011Q1

REPORT INFORMATION
  Report Type: 
  Country: None (occurrence: None)
  Receive Date: 20110228
  Receipt Date: 20110217
  Transmission Date: 20110831
  Serious: Yes (Other)
  Sender: FDA-Public Use
  Company Number: DE-B.I. PHARMACEUTICALS,INC./RIDGEFIELD-2011-DE-01181GD

PATIENT
  Sex: Male

DRUGS (6)
  1. AZT [Suspect]
     Route: 064
  2. LAMIVUDINE [Suspect]
     Indication: PROPHYLAXIS AGAINST HIV INFECTION
  3. LAMIVUDINE [Suspect]
     Route: 064
  4. NEVIRAPINE [Suspect]
     Indication: PROPHYLAXIS AGAINST HIV INFECTION
  5. NEVIRAPINE [Suspect]
     Route: 064
  6. AZT [Suspect]
     Indication: PROPHYLAXIS AGAINST HIV INFECTION

REACTIONS (4)
  - HUMAN IMMUNODEFICIENCY VIRUS TRANSMISSION [None]
  - DRUG RESISTANCE [None]
  - PREMATURE BABY [None]
  - SMALL FOR DATES BABY [None]
